FAERS Safety Report 4830505-0 (Version None)
Quarter: 2005Q4

REPORT INFORMATION
  Report Type: 
  Country: None (occurrence: None)
  Receive Date: 20051117
  Receipt Date: 20051109
  Transmission Date: 20060501
  Serious: Yes (Other)
  Sender: FDA-Public Use
  Company Number: PHBS2005FR16586

PATIENT
  Age: 68 Year
  Sex: Male

DRUGS (4)
  1. CYCLOSPORINE [Suspect]
     Indication: RENAL AND LIVER TRANSPLANT
  2. MYCOPHENOLATE MOFETIL [Suspect]
     Indication: RENAL AND LIVER TRANSPLANT
  3. SIROLIMUS [Suspect]
     Indication: RENAL AND LIVER TRANSPLANT
     Dosage: 3 MG/DAY
  4. PREDNISONE [Concomitant]
     Dosage: 15 MG/DAY

REACTIONS (7)
  - BLOOD CREATININE INCREASED [None]
  - FOCAL GLOMERULOSCLEROSIS [None]
  - KAPOSI'S SARCOMA [None]
  - NEPHROPATHY TOXIC [None]
  - PROTEINURIA [None]
  - RENAL VESSEL DISORDER [None]
  - SKIN LESION [None]
